FAERS Safety Report 9940148 (Version 1)
Quarter: 2014Q1

REPORT INFORMATION
  Report Type: Report from Study
  Country: US (occurrence: US)
  Receive Date: 20140303
  Receipt Date: 20140303
  Transmission Date: 20141002
  Serious: No
  Sender: FDA-Public Use
  Company Number: US-ABBVIE-13P-163-1035690-00

PATIENT
  Age: 79 Year
  Sex: Male

DRUGS (2)
  1. HUMIRA [Suspect]
     Indication: CROHN^S DISEASE
     Dosage: LOADING DOSE
     Dates: start: 20130109, end: 20130109
  2. HUMIRA [Suspect]
     Dates: start: 20130110

REACTIONS (4)
  - Fatigue [Unknown]
  - Gait disturbance [Unknown]
  - Dizziness [Unknown]
  - Gait disturbance [Unknown]
